FAERS Safety Report 9688220 (Version 1)
Quarter: 2013Q4

REPORT INFORMATION
  Report Type: Spontaneous
  Country: US (occurrence: US)
  Receive Date: 20131114
  Receipt Date: 20131114
  Transmission Date: 20140711
  Serious: No
  Sender: FDA-Public Use
  Company Number: US-PFIZER INC-2013324834

PATIENT
  Age: 43 Year
  Sex: Female

DRUGS (3)
  1. SUTENT [Suspect]
     Indication: RENAL CELL CARCINOMA
     Dosage: 37.5 MG (BY TAKING 25MG ONE CAPSULE AND 12.5MG ONE CAPSULE), 1X/DAY
     Route: 048
     Dates: start: 201306, end: 20130911
  2. DURAGESIC [Concomitant]
     Indication: PAIN
     Dosage: UNK
     Route: 062
  3. DECADRON [Concomitant]
     Dosage: 4 MG, UNK

REACTIONS (2)
  - Nausea [Unknown]
  - Vomiting [Unknown]
